FAERS Safety Report 17055165 (Version 2)
Quarter: 2019Q4

REPORT INFORMATION
  Report Type: Report from Study
  Country: CO (occurrence: CO)
  Receive Date: 20191120
  Receipt Date: 20191211
  Transmission Date: 20200122
  Serious: Yes (Hospitalization)
  Sender: FDA-Public Use
  Company Number: CO-NOVOPROD-696518

PATIENT
  Age: 35 Year
  Sex: Female

DRUGS (1)
  1. SAXENDA [Suspect]
     Active Substance: LIRAGLUTIDE
     Indication: PRODUCT USED FOR UNKNOWN INDICATION
     Dosage: 1.8UNSPECIFIED DOSAGE UNTIS
     Route: 065
     Dates: start: 20191019, end: 20191101

REACTIONS (1)
  - Chronic gastritis [Unknown]

NARRATIVE: CASE EVENT DATE: 20191101
